FAERS Safety Report 8411848 (Version 3)
Quarter: 2013Q1

REPORT INFORMATION
  Report Type: Spontaneous
  Country: US (occurrence: US)
  Receive Date: 20120217
  Receipt Date: 20130206
  Transmission Date: 20140127
  Serious: No
  Sender: FDA-Public Use
  Company Number: PHEH2012US003727

PATIENT
  Sex: Female

DRUGS (2)
  1. TASIGNA [Suspect]
     Indication: CHRONIC MYELOID LEUKAEMIA
     Dosage: 300 MG, BID
     Route: 048
     Dates: start: 20120116
  2. PREDNISON GALEPHARM [Concomitant]

REACTIONS (3)
  - Influenza like illness [Unknown]
  - Rash [Recovered/Resolved]
  - Malaise [Unknown]
